FAERS Safety Report 11839961 (Version 2)
Quarter: 2015Q4

REPORT INFORMATION
  Report Type: Spontaneous
  Country: MY (occurrence: MY)
  Receive Date: 20151216
  Receipt Date: 20151222
  Transmission Date: 20160305
  Serious: Yes (Other)
  Sender: FDA-Public Use
  Company Number: MY-ACTAVIS-2015-27606

PATIENT
  Age: 24 Year
  Sex: Male

DRUGS (1)
  1. METOCLOPRAMIDE. [Suspect]
     Active Substance: METOCLOPRAMIDE
     Indication: NAUSEA
     Dosage: 20 MG, DAILY
     Route: 048

REACTIONS (1)
  - Oculogyric crisis [Unknown]

NARRATIVE: CASE EVENT DATE: 201103
